FAERS Safety Report 8584265-0 (Version None)
Quarter: 2012Q3

REPORT INFORMATION
  Report Type: 
  Country: None (occurrence: None)
  Receive Date: 20120810
  Receipt Date: 20120507
  Transmission Date: 20120928
  Serious: Yes (Hospitalization)
  Sender: FDA-Public Use
  Company Number: DE-MSD-2012SP024494

PATIENT

DRUGS (8)
  1. INVIRASE [Concomitant]
     Indication: HIV INFECTION
     Dosage: 100 MG, BID
     Route: 048
     Dates: start: 20070924
  2. COPEGUS [Suspect]
     Indication: HEPATITIS C
     Dosage: 1200 MG, QD
     Route: 048
     Dates: start: 20090216
  3. LOPINAVIR AND RITONAVIR [Concomitant]
     Indication: HIV INFECTION
     Dosage: DOSE: 200/50 MG
     Dates: start: 20070924
  4. PEGINTERFERON ALFA-2B [Suspect]
     Indication: HEPATITIS C
     Dosage: 150 ?G, QW
     Route: 058
     Dates: start: 20090216
  5. PEGINTERFERON ALFA-2B [Suspect]
     Dosage: 80 ?G, QW
     Route: 058
  6. COPEGUS [Suspect]
     Dosage: 800 MG, QD
     Route: 048
  7. METHADON HCL TAB [Concomitant]
     Indication: THERAPY REGIMEN CHANGED
     Dosage: 10 ML, QD
     Route: 048
  8. FLUCONAZOLE [Concomitant]
     Indication: ANTIFUNGAL PROPHYLAXIS

REACTIONS (2)
  - DISTURBANCE IN ATTENTION [None]
  - HAEMOGLOBIN DECREASED [None]
